FAERS Safety Report 9284728 (Version 3)
Quarter: 2013Q3

REPORT INFORMATION
  Report Type: Report from Study
  Country: PL (occurrence: PL)
  Receive Date: 20130513
  Receipt Date: 20130725
  Transmission Date: 20140515
  Serious: Yes (Hospitalization)
  Sender: FDA-Public Use
  Company Number: PL-BIOGENIDEC-2012BI041477

PATIENT
  Age: 47 Year
  Sex: Male
  Weight: 100 kg

DRUGS (1)
  1. BG00012 [Suspect]
     Indication: MULTIPLE SCLEROSIS
     Dates: start: 20091216

REACTIONS (1)
  - Myocardial infarction [Recovered/Resolved]
